FAERS Safety Report 19503335 (Version 1)
Quarter: 2021Q3

REPORT INFORMATION
  Report Type: Spontaneous
  Country: BR (occurrence: BR)
  Receive Date: 20210707
  Receipt Date: 20210707
  Transmission Date: 20211014
  Serious: Yes (Death)
  Sender: FDA-Public Use
  Company Number: BR-BAYER-2021-169120

PATIENT
  Age: 69 Year
  Sex: Male

DRUGS (1)
  1. NEXAVAR [Suspect]
     Active Substance: SORAFENIB
     Indication: PROSTATE CANCER
     Dosage: 160 MG, QD
     Route: 048

REACTIONS (4)
  - Pneumonia aspiration [Fatal]
  - Acute respiratory failure [Fatal]
  - Off label use [None]
  - Prostate cancer [Fatal]
